FAERS Safety Report 9149433 (Version 1)
Quarter: 2013Q1

REPORT INFORMATION
  Report Type: Spontaneous
  Country: JP (occurrence: JP)
  Receive Date: 20130308
  Receipt Date: 20130308
  Transmission Date: 20140127
  Serious: Yes (Hospitalization, Other)
  Sender: FDA-Public Use
  Company Number: JP-ASTELLAS-2013JP003273

PATIENT
  Age: 79 Year
  Sex: Female

DRUGS (3)
  1. BETANIS [Suspect]
     Indication: HYPERTONIC BLADDER
     Dosage: 50 MG, UNKNOWN/D
     Route: 048
     Dates: start: 20121219, end: 20130213
  2. DEPAKENE                           /00228501/ [Concomitant]
     Route: 048
  3. CYMBALTA [Concomitant]
     Route: 048

REACTIONS (4)
  - Urinary retention [Not Recovered/Not Resolved]
  - Melaena [Not Recovered/Not Resolved]
  - Haematochezia [Not Recovered/Not Resolved]
  - Diarrhoea [Not Recovered/Not Resolved]
